FAERS Safety Report 24033328 (Version 2)
Quarter: 2024Q3

REPORT INFORMATION
  Report Type: Report from Study
  Country: US (occurrence: US)
  Receive Date: 20240701
  Receipt Date: 20240708
  Transmission Date: 20241016
  Serious: Yes (Death)
  Sender: JOHNSON AND JOHNSON
  Company Number: US-JNJFOC-20240672713

PATIENT
  Sex: Female

DRUGS (6)
  1. SPRAVATO [Suspect]
     Active Substance: ESKETAMINE
     Indication: Depression
     Dosage: 56 MG, 2 TOTAL DOSES
     Dates: start: 20200328, end: 20200329
  2. SPRAVATO [Suspect]
     Active Substance: ESKETAMINE
     Dosage: 84 MG, 60 TOTAL DOSES
     Dates: start: 20200403, end: 20210609
  3. SPRAVATO [Suspect]
     Active Substance: ESKETAMINE
     Dosage: 56 MG, 1 TOTAL DOSES
     Dates: start: 20210618, end: 20210618
  4. SPRAVATO [Suspect]
     Active Substance: ESKETAMINE
     Dosage: 84 MG, 164 TOTAL DOSES
     Dates: start: 20210629, end: 20240408
  5. SPRAVATO [Suspect]
     Active Substance: ESKETAMINE
     Dates: start: 20240506
  6. PRISTIQ EXTENDED-RELEASE [Concomitant]
     Active Substance: DESVENLAFAXINE SUCCINATE
     Indication: Product used for unknown indication
     Route: 065

REACTIONS (1)
  - Death [Fatal]
